FAERS Safety Report 21136379 (Version 1)
Quarter: 2022Q3

REPORT INFORMATION
  Report Type: Report from Study
  Country: JP (occurrence: JP)
  Receive Date: 20220727
  Receipt Date: 20220727
  Transmission Date: 20221026
  Serious: Yes (Death, Other)
  Sender: FDA-Public Use
  Company Number: JP-PFIZER INC-PV202200027079

PATIENT

DRUGS (2)
  1. OXALIPLATIN [Suspect]
     Active Substance: OXALIPLATIN
     Indication: Colorectal cancer recurrent
     Dosage: CYCLIC (UP TO 8 CYCLES)
     Route: 042
  2. CAPECITABINE [Suspect]
     Active Substance: CAPECITABINE
     Dosage: CYCLIC (TWICE DAILY FOR 14 DAYS FOLLOWED BY A 7-DAYS REST, UP TO 8 CYCLES)
     Route: 048

REACTIONS (1)
  - Disseminated intravascular coagulation [Fatal]
